FAERS Safety Report 8849676 (Version 1)
Quarter: 2012Q4

REPORT INFORMATION
  Report Type: 
  Country: US (occurrence: US)
  Receive Date: 20121019
  Receipt Date: 20121019
  Transmission Date: 20130627
  Serious: No
  Sender: FDA-Public Use
  Company Number: US-009507513-1210USA004518

PATIENT

DRUGS (1)
  1. NASONEX [Suspect]
     Dosage: UNK
     Route: 045

REACTIONS (2)
  - Cataract [Unknown]
  - Glaucoma [Unknown]
